FAERS Safety Report 9404459 (Version 2)
Quarter: 2013Q3

REPORT INFORMATION
  Report Type: Spontaneous
  Country: US (occurrence: US)
  Receive Date: 20130711
  Receipt Date: 20130726
  Transmission Date: 20140515
  Serious: Yes (Death)
  Sender: FDA-Public Use
  Company Number: PRED20130040

PATIENT
  Age: 75 Year
  Sex: Male

DRUGS (10)
  1. PREDNISONE [Suspect]
     Indication: CHRONIC LYMPHOCYTIC LEUKAEMIA
  2. PREDNISONE [Suspect]
     Indication: CHEMOTHERAPY
  3. CLADRIBINE [Suspect]
     Indication: CHRONIC LYMPHOCYTIC LEUKAEMIA
  4. CLADRIBINE [Suspect]
     Indication: CHEMOTHERAPY
  5. CYCLOPHOSPHAMIDE [Suspect]
     Indication: CHRONIC LYMPHOCYTIC LEUKAEMIA
  6. CYCLOPHOSPHAMIDE [Suspect]
     Indication: CHEMOTHERAPY
  7. VINCRISTINE [Suspect]
     Indication: CHRONIC LYMPHOCYTIC LEUKAEMIA
  8. VINCRISTINE [Suspect]
     Indication: CHEMOTHERAPY
  9. FLUDARABINE [Suspect]
     Indication: CHRONIC LYMPHOCYTIC LEUKAEMIA
  10. FLUDARABINE [Suspect]
     Indication: CHEMOTHERAPY

REACTIONS (5)
  - Thrombocytopenia [None]
  - Myelodysplastic syndrome [None]
  - Pancytopenia [None]
  - Pyrexia [None]
  - Erythroleukaemia [None]
